FAERS Safety Report 15920708 (Version 1)
Quarter: 2019Q1

REPORT INFORMATION
  Report Type: Spontaneous
  Country: CZ (occurrence: CZ)
  Receive Date: 20190205
  Receipt Date: 20190205
  Transmission Date: 20190417
  Serious: Yes (Other)
  Sender: FDA-Public Use
  Company Number: CZ-MYLANLABS-2019M1009600

PATIENT
  Sex: Female

DRUGS (1)
  1. LINEZOLID. [Suspect]
     Active Substance: LINEZOLID
     Indication: PLEURAL FIBROSIS
     Dosage: UNK
     Route: 042

REACTIONS (5)
  - Vomiting [Unknown]
  - Cognitive disorder [Unknown]
  - Nausea [Unknown]
  - Lactic acidosis [Recovering/Resolving]
  - Kussmaul respiration [Unknown]
